FAERS Safety Report 15966862 (Version 1)
Quarter: 2019Q1

REPORT INFORMATION
  Report Type: Spontaneous
  Country: US (occurrence: US)
  Receive Date: 20190215
  Receipt Date: 20190215
  Transmission Date: 20190418
  Serious: Yes (Other)
  Sender: FDA-Public Use
  Company Number: US-TEVA-2019-US-1010705

PATIENT
  Age: 56 Year
  Sex: Female

DRUGS (3)
  1. VITAMIN B12 [Concomitant]
     Active Substance: CYANOCOBALAMIN
  2. PANTOPRAZOLE SODIUM DELAYED-RELEASE TABLET [Suspect]
     Active Substance: PANTOPRAZOLE SODIUM
     Indication: GASTROOESOPHAGEAL REFLUX DISEASE
     Dosage: DELAYED RELEASE TABLET, TAKING THIS PRODUCT FOR MANY YEARS ON AND OFF
     Route: 065
  3. MAGNESIUM [Concomitant]
     Active Substance: MAGNESIUM

REACTIONS (5)
  - Asthenia [Unknown]
  - Arthralgia [Unknown]
  - Visual impairment [Unknown]
  - Hemiparaesthesia [Unknown]
  - Abdominal discomfort [Unknown]
